FAERS Safety Report 19105293 (Version 2)
Quarter: 2021Q3

REPORT INFORMATION
  Report Type: Spontaneous
  Country: US (occurrence: US)
  Receive Date: 20210408
  Receipt Date: 20210714
  Transmission Date: 20211014
  Serious: Yes (Other)
  Sender: FDA-Public Use
  Company Number: US-BRISTOL-MYERS SQUIBB COMPANY-BMS-2021-031535

PATIENT
  Age: 61 Year
  Sex: Male

DRUGS (2)
  1. YERVOY [Suspect]
     Active Substance: IPILIMUMAB
     Indication: SMALL CELL LUNG CANCER
     Dosage: 77 MILLIGRAM, Q3WK
     Route: 042
     Dates: start: 20191227, end: 20210304
  2. OPDIVO [Suspect]
     Active Substance: NIVOLUMAB
     Indication: SMALL CELL LUNG CANCER
     Dosage: 231 MILLIGRAM, Q3WK
     Route: 042
     Dates: start: 20191227, end: 20210304

REACTIONS (2)
  - Intentional product use issue [Unknown]
  - Neoplasm malignant [Unknown]
